FAERS Safety Report 5711683-8 (Version None)
Quarter: 2008Q2

REPORT INFORMATION
  Report Type: 
  Country: None (occurrence: None)
  Receive Date: 20080421
  Receipt Date: 20080409
  Transmission Date: 20081010
  Serious: Yes (Other)
  Sender: FDA-Public Use
  Company Number: US-PFIZER INC-2008001129

PATIENT
  Sex: Female

DRUGS (1)
  1. CHANTIX [Suspect]

REACTIONS (5)
  - ERYTHEMA [None]
  - EYE DISORDER [None]
  - IMPAIRED DRIVING ABILITY [None]
  - MUSCLE TWITCHING [None]
  - SKIN EXFOLIATION [None]
